FAERS Safety Report 8399166-0 (Version None)
Quarter: 2012Q1

REPORT INFORMATION
  Report Type: 
  Country: None (occurrence: None)
  Receive Date: 20120323
  Receipt Date: 20110712
  Transmission Date: 20120608
  Serious: Yes (Hospitalization)
  Sender: FDA-Public Use
  Company Number: 163-21880-11061709

PATIENT
  Age: 55 Year
  Sex: Female
  Weight: 73.9363 kg

DRUGS (11)
  1. HYDROMORPHONE HCL [Concomitant]
  2. ALPRAZOLAM [Concomitant]
  3. REVLIMID [Suspect]
     Indication: MULTIPLE MYELOMA
     Dosage: 25 MG, DAILY X 14 DAYS, OFF 7 DAYS, PO
     Route: 048
     Dates: start: 20110101
  4. REVLIMID [Suspect]
     Indication: MULTIPLE MYELOMA
     Dosage: 25 MG, DAILY X 14 DAYS, OFF 7 DAYS, PO
     Route: 048
     Dates: start: 20110517, end: 20110101
  5. GABAPENTIN [Concomitant]
  6. METHADONE HCL (METHADONE HYDROCHLORIDE) [Concomitant]
  7. POTASSIUM CHLORIDE [Concomitant]
  8. CELEBREX [Concomitant]
  9. PEG ELECTROLYTES (COLYTE ^REED^) [Concomitant]
  10. TIZANIDINE HCL (TIZANIDINE HYDROCHLORIDE) [Concomitant]
  11. DEXAMETHASONE [Concomitant]

REACTIONS (1)
  - DEEP VEIN THROMBOSIS [None]
